FAERS Safety Report 14308134 (Version 2)
Quarter: 2018Q1

REPORT INFORMATION
  Report Type: Report from Study
  Country: AU (occurrence: AU)
  Receive Date: 20171220
  Receipt Date: 20180214
  Transmission Date: 20180509
  Serious: Yes (Other)
  Sender: FDA-Public Use
  Company Number: AU-REGENERON PHARMACEUTICALS, INC.-2017-29185

PATIENT

DRUGS (2)
  1. EYLEA [Suspect]
     Active Substance: AFLIBERCEPT
     Indication: NEOVASCULAR AGE-RELATED MACULAR DEGENERATION
     Dosage: UNK, INJECTION IN RIGHT EYE
     Route: 031
     Dates: start: 201601
  2. EYLEA [Suspect]
     Active Substance: AFLIBERCEPT
     Dosage: UNK, STARTED INJECTING IN LEFT EYE
     Route: 031
     Dates: start: 20171205

REACTIONS (3)
  - Neovascular age-related macular degeneration [Unknown]
  - Frustration tolerance decreased [Not Recovered/Not Resolved]
  - Visual impairment [Not Recovered/Not Resolved]

NARRATIVE: CASE EVENT DATE: 20171205
